FAERS Safety Report 8911507 (Version 1)
Quarter: 2012Q4

REPORT INFORMATION
  Report Type: 
  Country: US (occurrence: US)
  Receive Date: 20121115
  Receipt Date: 20121115
  Transmission Date: 20130627
  Serious: No
  Sender: FDA-Public Use
  Company Number: US-PFIZER INC-2012281568

PATIENT
  Sex: Male

DRUGS (2)
  1. TOVIAZ [Suspect]
     Dosage: UNK, daily
     Dates: start: 20121106
  2. FLOMAX [Concomitant]
     Dosage: UNK, daily

REACTIONS (2)
  - Food interaction [Unknown]
  - Urinary hesitation [Unknown]
